FAERS Safety Report 17222423 (Version 1)
Quarter: 2020Q1

REPORT INFORMATION
  Report Type: Spontaneous
  Country: CA (occurrence: CA)
  Receive Date: 20200101
  Receipt Date: 20200101
  Transmission Date: 20200409
  Serious: Yes (Other)
  Sender: FDA-Public Use
  Company Number: CA-ABBVIE-19K-028-3214263-00

PATIENT
  Age: 57 Year
  Sex: Female

DRUGS (2)
  1. CALCIUM CARBONATE. [Suspect]
     Active Substance: CALCIUM CARBONATE
     Indication: OSTEOPOROSIS
     Route: 048
  2. HUMIRA [Suspect]
     Active Substance: ADALIMUMAB
     Indication: PSORIATIC ARTHROPATHY
     Route: 058

REACTIONS (7)
  - Osteoporosis [Unknown]
  - Pneumonia [Unknown]
  - Constipation [Unknown]
  - Spinal column injury [Unknown]
  - Tuberculosis [Unknown]
  - Back pain [Unknown]
  - Cough [Unknown]
